FAERS Safety Report 4351228-0 (Version None)
Quarter: 2004Q2

REPORT INFORMATION
  Report Type: 
  Country: None (occurrence: None)
  Receive Date: 20040428
  Receipt Date: 20040428
  Transmission Date: 20050107
  Serious: Yes (Other)
  Sender: FDA-Public Use
  Company Number: None

PATIENT
  Sex: Female

DRUGS (1)
  1. TWICE -A-DAY NASAL SPRAY (12 HOUR) PROPHARMA INC. [Suspect]
     Indication: NASAL DECONGESTION THERAPY
     Dates: start: 20040801, end: 20040901

REACTIONS (2)
  - PAROSMIA [None]
  - SINUS DISORDER [None]
